FAERS Safety Report 4288642-8 (Version None)
Quarter: 2004Q1

REPORT INFORMATION
  Report Type: 
  Country: None (occurrence: None)
  Receive Date: 20040205
  Receipt Date: 20040121
  Transmission Date: 20041129
  Serious: Yes (Hospitalization, Other)
  Sender: FDA-Public Use
  Company Number: M04-341-017

PATIENT
  Age: 50 Year
  Sex: Male
  Weight: 70 kg

DRUGS (5)
  1. VELCADE [Suspect]
     Indication: MULTIPLE MYELOMA
     Dosage: 2.35 MG BIW: INTRAVENOUS BOLUS
     Route: 040
     Dates: start: 20031230, end: 20040109
  2. OXYCONTIN [Concomitant]
  3. PROTONIX [Concomitant]
  4. ZOLOFT [Concomitant]
  5. ZOMETA [Concomitant]

REACTIONS (3)
  - HAEMOPTYSIS [None]
  - MUCOSAL HAEMORRHAGE [None]
  - THROMBOCYTOPENIA [None]
